FAERS Safety Report 5097032-X (Version None)
Quarter: 2006Q3

REPORT INFORMATION
  Report Type: 
  Country: None (occurrence: None)
  Receive Date: 20060906
  Receipt Date: 20060830
  Transmission Date: 20061208
  Serious: Yes (Hospitalization, Other)
  Sender: FDA-Public Use
  Company Number: US-JNJFOC-20060701068

PATIENT
  Age: 71 Year
  Sex: Female

DRUGS (8)
  1. REMICADE [Suspect]
  2. REMICADE [Suspect]
  3. REMICADE [Suspect]
     Indication: RHEUMATOID ARTHRITIS
     Dosage: LENGTH OF TREATMENT APPROXIMATELY 20 MONTHS
  4. METHOTREXATE [Concomitant]
  5. CELEBREX [Concomitant]
  6. SYNTHROID [Concomitant]
  7. ACIPHEX [Concomitant]
  8. FOLATE [Concomitant]

REACTIONS (6)
  - BRONCHITIS [None]
  - CHOLANGITIS [None]
  - CHOLECYSTITIS [None]
  - PANCREATITIS [None]
  - UPPER RESPIRATORY TRACT INFECTION [None]
  - URINARY TRACT INFECTION [None]
